FAERS Safety Report 24001815 (Version 1)
Quarter: 2024Q2

REPORT INFORMATION
  Report Type: Spontaneous
  Country: US (occurrence: US)
  Receive Date: 20240622
  Receipt Date: 20240622
  Transmission Date: 20240716
  Serious: No
  Sender: FDA-Public Use
  Company Number: US-ABBVIE-5810755

PATIENT
  Age: 44 Year
  Sex: Female

DRUGS (1)
  1. LILETTA [Suspect]
     Active Substance: LEVONORGESTREL
     Indication: Product used for unknown indication
     Dosage: TIME INTERVAL: AS NECESSARY: LAST ADMIN DATE JUN 2024
     Route: 015
     Dates: start: 20240611

REACTIONS (2)
  - Hypomenorrhoea [Unknown]
  - Procedural pain [Unknown]

NARRATIVE: CASE EVENT DATE: 20240611
